FAERS Safety Report 8851794 (Version 1)
Quarter: 2012Q4

REPORT INFORMATION
  Report Type: Spontaneous
  Country: US (occurrence: None)
  Receive Date: 20121018
  Receipt Date: 20121018
  Transmission Date: 20130627
  Serious: Yes (Hospitalization)
  Sender: FDA-Public Use
  Company Number: None

PATIENT
  Age: 49 Year
  Sex: Male
  Weight: 86.5 kg

DRUGS (3)
  1. DAPTOMYCIN [Suspect]
     Indication: FOOT ULCER
     Route: 040
     Dates: start: 20120905, end: 20120929
  2. DAPTOMYCIN [Suspect]
     Indication: VANCOMYCIN-RESISTANT ENTEROCOCCAL INFECTION
     Route: 040
     Dates: start: 20120905, end: 20120929
  3. DAPTOMYCIN [Suspect]
     Indication: BACTERIAL INFECTION DUE TO STAPHYLOCOCCUS AUREUS
     Route: 040
     Dates: start: 20120905, end: 20120929

REACTIONS (5)
  - Respiratory distress [None]
  - Pneumonia aspiration [None]
  - Eosinophilic pneumonia [None]
  - Vomiting [None]
  - Choking [None]
